FAERS Safety Report 10070320 (Version 1)
Quarter: 2014Q2

REPORT INFORMATION
  Report Type: Spontaneous
  Country: US (occurrence: US)
  Receive Date: 20140410
  Receipt Date: 20140410
  Transmission Date: 20141212
  Serious: Yes (Other)
  Sender: FDA-Public Use
  Company Number: US-BAYER-2014-049018

PATIENT
  Age: 64 Year
  Sex: Female
  Weight: 99.77 kg

DRUGS (6)
  1. BAYER CHEWABLE LOW DOSE BABY ASPIRIN TABLET ORANGE [Suspect]
     Indication: ISCHAEMIC HEART DISEASE PROPHYLAXIS
     Dosage: 1 DF, QD
     Route: 048
     Dates: start: 201402
  2. ATORVASTATIN [Concomitant]
  3. IBUPROFEN [Concomitant]
  4. FISH OIL [Concomitant]
  5. GLUCOSAMINE W/CHONDROITIN SULFATE [Concomitant]
  6. TUMS [CALCIUM CARBONATE] [Concomitant]

REACTIONS (2)
  - Haemorrhage subcutaneous [Not Recovered/Not Resolved]
  - Faeces discoloured [Not Recovered/Not Resolved]
